FAERS Safety Report 5015669-0 (Version None)
Quarter: 2006Q2

REPORT INFORMATION
  Report Type: 
  Country: None (occurrence: None)
  Receive Date: 20060601
  Receipt Date: 20060517
  Transmission Date: 20061013
  Serious: Yes (Hospitalization)
  Sender: FDA-Public Use
  Company Number: JP-JPN-A200601607

PATIENT
  Age: 66 Year
  Sex: Female

DRUGS (7)
  1. PAXIL [Suspect]
     Indication: DEPRESSION
     Dosage: 20MG TWICE PER DAY
     Route: 048
     Dates: start: 20060501, end: 20060508
  2. PAXIL [Suspect]
     Dosage: 40MG PER DAY
     Route: 048
     Dates: start: 20060508, end: 20060515
  3. SILECE [Concomitant]
     Indication: INSOMNIA
     Dosage: 2MG PER DAY
     Route: 048
     Dates: start: 20060427
  4. AKINETON [Concomitant]
     Indication: PARKINSONISM
     Dosage: 2MG PER DAY
     Route: 048
     Dates: start: 19900101
  5. PERPHENAZINE [Concomitant]
     Route: 065
  6. AMOBAN [Concomitant]
     Indication: INSOMNIA
     Dosage: 7.5MG PER DAY
     Route: 048
     Dates: start: 20060427
  7. RISPERDAL [Concomitant]
     Indication: SCHIZOPHRENIA
     Dosage: 6MG PER DAY
     Route: 048
     Dates: start: 19890101

REACTIONS (3)
  - DELIRIUM [None]
  - DISORIENTATION [None]
  - PSYCHOMOTOR HYPERACTIVITY [None]
